FAERS Safety Report 6602861-4 (Version None)
Quarter: 2010Q1

REPORT INFORMATION
  Report Type: 
  Country: None (occurrence: None)
  Receive Date: 20100226
  Receipt Date: 20100216
  Transmission Date: 20100710
  Serious: Yes (Other)
  Sender: FDA-Public Use
  Company Number: GB-RANBAXY-2010RR-31303

PATIENT
  Age: 74 Year
  Sex: Male
  Weight: 77 kg

DRUGS (9)
  1. RAMIPRIL [Suspect]
     Dosage: 1.25 MG, QD
     Route: 048
     Dates: start: 20071128, end: 20100203
  2. ARANESP [Suspect]
     Indication: RENAL FAILURE CHRONIC
     Dosage: 60 UG, UNK
     Route: 058
  3. 5-FU [Concomitant]
  4. ATORVASTATIN CALCIUM [Concomitant]
     Dosage: 20 MG, QD
     Route: 048
     Dates: start: 20040225
  5. CYCLOPHOSPHAMIDE [Concomitant]
     Dosage: 500 MG, 1/WEEK
     Route: 048
     Dates: start: 20080124, end: 20080515
  6. DEXAMETHASONE [Concomitant]
  7. RANITIDINE [Concomitant]
     Dosage: 150 MG, BID
     Route: 048
     Dates: start: 20091019
  8. THALIDOMIDE [Concomitant]
     Dosage: 250 MG, QD
     Route: 048
     Dates: start: 20080124, end: 20080515
  9. WARFARIN SODIUM [Concomitant]
     Dosage: UNK
     Route: 048
     Dates: start: 20080124, end: 20090907

REACTIONS (4)
  - BLOOD PRODUCT TRANSFUSION DEPENDENT [None]
  - BONE MARROW FAILURE [None]
  - CONDITION AGGRAVATED [None]
  - PANCYTOPENIA [None]
